FAERS Safety Report 19444657 (Version 1)
Quarter: 2021Q2

REPORT INFORMATION
  Report Type: Spontaneous
  Country: AT (occurrence: AT)
  Receive Date: 20210621
  Receipt Date: 20210621
  Transmission Date: 20210717
  Serious: Yes (Other)
  Sender: FDA-Public Use
  Company Number: AT-MYLANLABS-2021M1034991

PATIENT
  Age: 18 Year
  Sex: Female

DRUGS (2)
  1. SILDENAFIL. [Suspect]
     Active Substance: SILDENAFIL
     Indication: PULMONARY ARTERIAL HYPERTENSION
     Dosage: UNK
  2. BOSENTAN. [Suspect]
     Active Substance: BOSENTAN
     Indication: PULMONARY ARTERIAL HYPERTENSION
     Dosage: UNK
     Dates: end: 2018

REACTIONS (6)
  - Pericardial effusion [Recovered/Resolved]
  - Right ventricular dilatation [Unknown]
  - Off label use [Unknown]
  - Drug ineffective [Unknown]
  - Iron deficiency anaemia [Recovered/Resolved]
  - Right ventricular hypertrophy [Unknown]
